FAERS Safety Report 7882596-0 (Version None)
Quarter: 2011Q4

REPORT INFORMATION
  Report Type: 
  Country: None (occurrence: None)
  Receive Date: 20111101
  Receipt Date: 20110616
  Transmission Date: 20120403
  Serious: No
  Sender: FDA-Public Use
  Company Number: US-AMGEN-USASP2011030915

PATIENT
  Sex: Female
  Weight: 57.596 kg

DRUGS (11)
  1. LIPITOR [Concomitant]
     Dosage: 10 MG, UNK
  2. OMEPRAZOLE [Concomitant]
     Dosage: 20 MG, UNK
  3. PLENDIL [Concomitant]
     Dosage: 5 MG, UNK
  4. PATANASE [Concomitant]
  5. ASPIRIN [Concomitant]
     Dosage: 81 MG, UNK
  6. ENBREL [Suspect]
     Indication: RHEUMATOID ARTHRITIS
     Dosage: 50 MG, QWK
  7. FOLIC ACID [Concomitant]
     Dosage: 1 MG, UNK
  8. SYNTHROID [Concomitant]
     Dosage: 25 MUG, UNK
  9. TOPROL-XL [Concomitant]
     Dosage: 25 MG, UNK
  10. ALTACE [Concomitant]
     Dosage: 1.25 MG, UNK
  11. CALCIUM [Concomitant]

REACTIONS (1)
  - HYPOAESTHESIA [None]
